FAERS Safety Report 11679238 (Version 2)
Quarter: 2015Q4

REPORT INFORMATION
  Report Type: Spontaneous
  Country: US (occurrence: US)
  Receive Date: 20151027
  Receipt Date: 20151104
  Transmission Date: 20160304
  Serious: No
  Sender: FDA-Public Use
  Company Number: US-ELI_LILLY_AND_COMPANY-US201007005553

PATIENT
  Sex: Female

DRUGS (20)
  1. VITAMIN D3 [Concomitant]
     Active Substance: CHOLECALCIFEROL
     Dosage: 1000 IU, 4/D
  2. IRON [Concomitant]
     Active Substance: IRON
     Dosage: 27 MG, UNK
  3. FORTEO [Suspect]
     Active Substance: TERIPARATIDE
     Indication: OSTEOPOROSIS
     Dosage: 20 UG, DAILY (1/D)
     Route: 065
     Dates: start: 20100115
  4. FORTEO [Suspect]
     Active Substance: TERIPARATIDE
     Dosage: 20 UG, DAILY (1/D)
  5. FUROSEMIDE. [Concomitant]
     Active Substance: FUROSEMIDE
     Dosage: 40 MG, DAILY (1/D)
  6. ASPIRIN /SCH/ [Concomitant]
     Dosage: 81 MG, DAILY (1/D)
  7. KLOR-CON [Concomitant]
     Active Substance: POTASSIUM CHLORIDE
     Dosage: 8 MEQ, 2/D
  8. FISH OIL [Concomitant]
     Active Substance: FISH OIL
     Dosage: 1000 MG, DAILY (1/D)
  9. CALCIUM PLUS /00751501/ [Concomitant]
     Dosage: UNK, DAILY (1/D)
  10. QUINIDINE GLUCONATE. [Concomitant]
     Active Substance: QUINIDINE GLUCONATE
     Dosage: 324 MG, 2/D
  11. FORTEO [Suspect]
     Active Substance: TERIPARATIDE
     Dosage: 20 UG, DAILY (1/D)
  12. VITAMIN C [Concomitant]
     Active Substance: ASCORBIC ACID
     Dosage: 500 MG, 4/D
  13. LEVOTHYROXINE. [Concomitant]
     Active Substance: LEVOTHYROXINE
     Dosage: 100 UG, OTHER
  14. FEXOFENADINE HYDROCHLORIDE. [Concomitant]
     Active Substance: FEXOFENADINE HYDROCHLORIDE
     Dosage: 60 MG, 2/D
  15. LECITHIN [Concomitant]
     Active Substance: LECITHIN
     Dosage: 1200 MG, DAILY (1/D)
  16. ALPRAZOLAM. [Concomitant]
     Active Substance: ALPRAZOLAM
     Dosage: 0.25 MG, 2/D
  17. SUPER B COMPLEX [Concomitant]
     Active Substance: CYANOCOBALAMIN\DEXPANTHENOL\NIACINAMIDE\PYRIDOXINE HYDROCHLORIDE\RIBOFLAVIN 5^-PHOSPHATE SODIUM\THIAMINE HYDROCHLORIDE\VITAMIN B COMPLEX
  18. SPIRONOLACTONE. [Concomitant]
     Active Substance: SPIRONOLACTONE
     Dosage: 25 MG, DAILY (1/D)
  19. MECLIZINE [Concomitant]
     Active Substance: MECLIZINE\MECLIZINE HYDROCHLORIDE
     Indication: DIZZINESS
     Dosage: 12.5 MG, DAILY (1/D)
  20. COD LIVER OIL [Concomitant]
     Active Substance: COD LIVER OIL
     Dosage: UNK, DAILY (1/D)

REACTIONS (8)
  - Back pain [Unknown]
  - Spinal fracture [Unknown]
  - Vitamin D decreased [Recovered/Resolved]
  - Pain [Unknown]
  - Blood calcium decreased [Recovered/Resolved]
  - Injection site bruising [Recovering/Resolving]
  - Coeliac disease [Unknown]
  - Skin atrophy [Unknown]

NARRATIVE: CASE EVENT DATE: 2010
